FAERS Safety Report 8993556 (Version 2)
Quarter: 2013Q1

REPORT INFORMATION
  Report Type: Spontaneous
  Country: US (occurrence: US)
  Receive Date: 20130102
  Receipt Date: 20130103
  Transmission Date: 20140127
  Serious: Yes (Other)
  Sender: FDA-Public Use
  Company Number: US-ASTRAZENECA-2005UW00079

PATIENT
  Age: 69 Year
  Sex: Female
  Weight: 77.1 kg

DRUGS (8)
  1. SYMBICORT PMDI [Suspect]
     Route: 055
  2. CRESTOR [Suspect]
     Indication: HYPERCHOLESTEROLAEMIA
     Route: 048
  3. THYROID [Concomitant]
     Indication: HYPOTHYROIDISM
  4. PROZAC [Concomitant]
  5. NEURONTIN [Concomitant]
  6. KLONOPIN [Concomitant]
     Indication: RESTLESS LEGS SYNDROME
  7. UNIVASC [Concomitant]
     Indication: HYPERTENSION
  8. COREG [Concomitant]

REACTIONS (12)
  - Cardiac failure congestive [Unknown]
  - Myocardial infarction [Unknown]
  - Cerebrovascular accident [Unknown]
  - Hypercalcaemia [Unknown]
  - Colitis [Unknown]
  - Fall [Unknown]
  - Transient ischaemic attack [Unknown]
  - Blood pressure increased [Unknown]
  - Memory impairment [Unknown]
  - Headache [Unknown]
  - Hyperkalaemia [Unknown]
  - Hypernatraemia [Unknown]
